FAERS Safety Report 11781697 (Version 1)
Quarter: 2015Q4

REPORT INFORMATION
  Report Type: Other
  Country: IN (occurrence: IN)
  Receive Date: 20151126
  Receipt Date: 20151126
  Transmission Date: 20160305
  Serious: Yes (Hospitalization)
  Sender: FDA-Public Use
  Company Number: IN-LUPIN PHARMACEUTICALS INC.-2015-03775

PATIENT
  Sex: Female
  Weight: 47 kg

DRUGS (1)
  1. LEVONORGESTREL. [Suspect]
     Active Substance: LEVONORGESTREL
     Indication: CONTRACEPTION
     Route: 048

REACTIONS (2)
  - Pregnancy on oral contraceptive [Unknown]
  - Ectopic pregnancy under hormonal contraception [Recovered/Resolved]
